FAERS Safety Report 7733256 (Version 6)
Quarter: 2013Q3

REPORT INFORMATION
  Report Type: Spontaneous
  Country: US (occurrence: US)
  Receive Date: 20101223
  Receipt Date: 20130923
  Transmission Date: 20140515
  Serious: Yes (Other)
  Sender: FDA-Public Use
  Company Number: US-PFIZER INC-US-WYE-H14188410

PATIENT
  Age: 41 Year
  Sex: Female
  Weight: 59 kg

DRUGS (3)
  1. EFFEXOR XR [Suspect]
     Indication: DEPRESSION
     Dosage: 225 MG, 1X/DAY
     Route: 048
  2. EFFEXOR XR [Suspect]
     Dosage: 75MG DAILY
     Route: 048
     Dates: start: 2000, end: 2009
  3. AMBIEN [Concomitant]
     Dosage: UNK

REACTIONS (4)
  - Mania [Recovering/Resolving]
  - Bipolar disorder [Unknown]
  - Weight increased [Recovered/Resolved]
  - Urinary hesitation [Unknown]
